FAERS Safety Report 25643844 (Version 1)
Quarter: 2025Q3

REPORT INFORMATION
  Report Type: Spontaneous
  Country: US (occurrence: None)
  Receive Date: 20250802
  Receipt Date: 20250802
  Transmission Date: 20251020
  Serious: Yes (Other)
  Sender: FDA-CTU
  Company Number: None

PATIENT
  Age: 49 Year
  Sex: Female

DRUGS (2)
  1. SUTAB [Suspect]
     Active Substance: MAGNESIUM SULFATE\POTASSIUM CHLORIDE\SODIUM SULFATE
  2. SYNTHROID [Concomitant]
     Active Substance: LEVOTHYROXINE SODIUM

REACTIONS (8)
  - Pruritus [None]
  - Urticaria [None]
  - Sneezing [None]
  - Nasal congestion [None]
  - Tachycardia [None]
  - Chest discomfort [None]
  - Vomiting [None]
  - Retching [None]

NARRATIVE: CASE EVENT DATE: 20220729
